FAERS Safety Report 9226806 (Version 1)
Quarter: 2013Q2

REPORT INFORMATION
  Report Type: Spontaneous
  Country: US (occurrence: None)
  Receive Date: 20130410
  Receipt Date: 20130410
  Transmission Date: 20140414
  Serious: Yes (Hospitalization)
  Sender: FDA-Public Use
  Company Number: DEP_00911_2013

PATIENT
  Age: 65 Year
  Sex: Female

DRUGS (4)
  1. GRALISE [Suspect]
     Indication: POST HERPETIC NEURALGIA
  2. OPIOIDS [Concomitant]
  3. FLEXERIL [Concomitant]
  4. OXYGEN [Concomitant]

REACTIONS (2)
  - Loss of consciousness [None]
  - Unresponsive to stimuli [None]
